FAERS Safety Report 9149672 (Version 1)
Quarter: 2013Q1

REPORT INFORMATION
  Report Type: Spontaneous
  Country: TR (occurrence: TR)
  Receive Date: 20130308
  Receipt Date: 20130308
  Transmission Date: 20140127
  Serious: Yes (Hospitalization, Other)
  Sender: FDA-Public Use
  Company Number: TR-BAYER-2013-029412

PATIENT
  Age: 32 Year
  Sex: Female

DRUGS (2)
  1. BETAFERON [Suspect]
     Indication: MULTIPLE SCLEROSIS
     Dosage: 250 MCG/ML, UNK
     Route: 058
  2. CORTISONE [Concomitant]

REACTIONS (6)
  - Rash [Not Recovered/Not Resolved]
  - Viral infection [Not Recovered/Not Resolved]
  - Swelling face [Not Recovered/Not Resolved]
  - Multi-organ failure [None]
  - Hepatic failure [None]
  - Renal failure [None]
